FAERS Safety Report 12172007 (Version 1)
Quarter: 2016Q1

REPORT INFORMATION
  Report Type: Spontaneous
  Country: GB (occurrence: GB)
  Receive Date: 20160311
  Receipt Date: 20160311
  Transmission Date: 20160526
  Serious: Yes (Other)
  Sender: FDA-Public Use
  Company Number: GB-GLAXOSMITHKLINE-GB2012000409

PATIENT
  Age: 15 Year
  Sex: Female

DRUGS (4)
  1. ABILIFY [Interacting]
     Active Substance: ARIPIPRAZOLE
     Indication: BIPOLAR DISORDER
  2. NEXPLANON [Interacting]
     Active Substance: ETONOGESTREL
     Indication: CONTRACEPTION
     Dosage: DOSE: 68MG
     Route: 059
  3. LAMICTAL [Suspect]
     Active Substance: LAMOTRIGINE
     Indication: BIPOLAR DISORDER
     Dosage: 50 MG, 3X/DAY (TID)
     Route: 048
  4. CETIRIZINE HYDROCHLORIDE. [Interacting]
     Active Substance: CETIRIZINE HYDROCHLORIDE
     Indication: SEASONAL ALLERGY
     Dosage: UNKNOWN
     Route: 048

REACTIONS (5)
  - Pregnancy with contraceptive device [Recovered/Resolved]
  - Drug interaction [Unknown]
  - Metrorrhagia [Unknown]
  - Abortion spontaneous [Unknown]
  - Exposure during pregnancy [Unknown]
